FAERS Safety Report 18428161 (Version 1)
Quarter: 2020Q4

REPORT INFORMATION
  Report Type: Spontaneous
  Country: US (occurrence: US)
  Receive Date: 20201026
  Receipt Date: 20201026
  Transmission Date: 20210114
  Serious: No
  Sender: FDA-Public Use
  Company Number: US-BIOHAVEN PHARMACEUTICALS-2020BHV00167

PATIENT
  Age: 61 Year
  Sex: Female
  Weight: 89.8 kg

DRUGS (10)
  1. TOPIRAMATE. [Concomitant]
     Active Substance: TOPIRAMATE
     Dosage: 126 MG, 2X/DAY
  2. VICTOZA [Concomitant]
     Active Substance: LIRAGLUTIDE
     Dosage: UNK UNK, 1X/DAY IN THE MORNING
  3. INVOKANA [Concomitant]
     Active Substance: CANAGLIFLOZIN
  4. DIPHENOXYLATE [Concomitant]
     Active Substance: DIPHENOXYLATE
     Dosage: 3 DOSAGE UNITS EVERY 8 HOURS WHEN NEEDED
  5. BENADRYL [Concomitant]
     Active Substance: DIPHENHYDRAMINE HYDROCHLORIDE
     Dosage: UNK, AS NEEDED
  6. EMGALITY [Concomitant]
     Active Substance: GALCANEZUMAB-GNLM
     Dosage: UNK, 4X/YEAR (EVERY 3 MONTHS)
  7. UNSPECIFIED ANTI-NAUSEA MEDICINE [Concomitant]
     Dosage: UNK, AS NEEDED
  8. NURTEC ODT [Suspect]
     Active Substance: RIMEGEPANT SULFATE
     Indication: MIGRAINE
     Dosage: 75 MG, AS NEEDED
     Route: 048
     Dates: start: 20200626
  9. LANTUS [Concomitant]
     Active Substance: INSULIN GLARGINE
     Dosage: UNK, 2X/DAY
  10. REGLAN [Concomitant]
     Active Substance: METOCLOPRAMIDE HYDROCHLORIDE
     Dosage: UNK, AS NEEDED

REACTIONS (2)
  - Migraine [Recovered/Resolved]
  - Drug ineffective [Not Recovered/Not Resolved]

NARRATIVE: CASE EVENT DATE: 20200627
